FAERS Safety Report 6582284-7 (Version None)
Quarter: 2010Q1

REPORT INFORMATION
  Report Type: 
  Country: None (occurrence: None)
  Receive Date: 20100212
  Receipt Date: 20100212
  Transmission Date: 20100710
  Serious: No
  Sender: FDA-Public Use
  Company Number: None

PATIENT
  Sex: Male
  Weight: 113 kg

DRUGS (6)
  1. DOXORUBICIN HCL [Suspect]
     Dosage: 576 MG
  2. ESTRAMUSTINE [Suspect]
     Dosage: 17640 MG
  3. NIZORAL [Suspect]
     Dosage: 112800 MG
  4. VINBLASTINE SULFATE [Suspect]
     Dosage: 57 MG
  5. COUMADIN [Concomitant]
  6. LISINOPRIL [Concomitant]

REACTIONS (1)
  - PLEURAL EFFUSION [None]
